FAERS Safety Report 8867401 (Version 1)
Quarter: 2012Q4

REPORT INFORMATION
  Report Type: 
  Country: US (occurrence: US)
  Receive Date: 20121025
  Receipt Date: 20121025
  Transmission Date: 20130627
  Serious: No
  Sender: FDA-Public Use
  Company Number: US-AMGEN-USASP2012016272

PATIENT
  Age: 57 Year
  Sex: Female
  Weight: 86.17 kg

DRUGS (9)
  1. ENBREL [Suspect]
     Indication: PRODUCT USED FOR UNKNOWN INDICATION
     Dosage: 25 mg, every 3 days
  2. METHOTREXATE [Concomitant]
     Dosage: 20 mg, UNK
  3. FOLIC ACID B-6 + B-12 [Concomitant]
  4. VITAMIN D /00107901/ [Concomitant]
  5. PREMPRO [Concomitant]
  6. HYDROCHLOROTH [Concomitant]
     Dosage: 12.5 mg, UNK
  7. CALCIUM [Concomitant]
     Dosage: 600 mg, UNK
  8. TRAMADOL HCL [Concomitant]
     Dosage: 200 mg, UNK
  9. SOMA CMPD [Concomitant]

REACTIONS (1)
  - Sinusitis [Unknown]
